FAERS Safety Report 5755337-0 (Version None)
Quarter: 2008Q2

REPORT INFORMATION
  Report Type: 
  Country: None (occurrence: None)
  Receive Date: 20080529
  Receipt Date: 20080529
  Transmission Date: 20081010
  Serious: Yes (Hospitalization)
  Sender: FDA-Public Use
  Company Number: None

PATIENT
  Age: 89 Year
  Sex: Male

DRUGS (11)
  1. WARFARIN SODIUM [Suspect]
     Indication: ATRIAL FIBRILLATION
     Dosage: 2MG Q2DAYS PO
     Route: 048
  2. WARFARIN SODIUM [Suspect]
     Indication: ATRIAL FIBRILLATION
     Dosage: 3MG Q2DAYS PO
     Route: 048
  3. ADVAIR DISKUS 100/50 [Concomitant]
  4. AMIODARONE HCL [Concomitant]
  5. DIOVAN [Concomitant]
  6. FOSAMAX [Concomitant]
  7. LASIX [Concomitant]
  8. LEVOTHYROXINE SODIUM [Concomitant]
  9. LIPITOR [Concomitant]
  10. MICRO-K [Concomitant]
  11. XOPENEX [Concomitant]

REACTIONS (1)
  - EPISTAXIS [None]
